FAERS Safety Report 25707235 (Version 2)
Quarter: 2025Q3

REPORT INFORMATION
  Report Type: Spontaneous
  Country: CN (occurrence: CN)
  Receive Date: 20250820
  Receipt Date: 20250912
  Transmission Date: 20251020
  Serious: Yes (Hospitalization)
  Sender: EAGLE
  Company Number: CN-EAGLE PHARMACEUTICALS, INC.-CN-2025EAG000106

PATIENT

DRUGS (6)
  1. BENDAMUSTINE HYDROCHLORIDE [Suspect]
     Active Substance: BENDAMUSTINE HYDROCHLORIDE
     Indication: Follicular lymphoma stage III
     Dosage: 140 MILLIGRAM, CYCLE 1 BENDA AND OBI THERAPY
     Route: 042
     Dates: start: 20250605, end: 20250704
  2. OBINUTUZUMAB [Suspect]
     Active Substance: OBINUTUZUMAB
     Indication: Follicular lymphoma stage III
     Dosage: 1000 MILLIGRAM, CYCLE 1 BENDA AND OBI THERAPY
     Route: 042
     Dates: start: 20250605, end: 20250703
  3. ENTECAVIR [Concomitant]
     Active Substance: ENTECAVIR
     Indication: Antiviral prophylaxis
     Dosage: 1 DF, QD
     Route: 065
     Dates: start: 20250527
  4. SULFAMETHOXAZOLE [Concomitant]
     Active Substance: SULFAMETHOXAZOLE
     Indication: Infection prophylaxis
     Dosage: 480 MG, QD
     Route: 065
     Dates: start: 20250608
  5. ACYCLOVIR [Concomitant]
     Active Substance: ACYCLOVIR
     Indication: Infection prophylaxis
     Dosage: 0.2 GRAM, QD
     Route: 065
     Dates: start: 20250608
  6. NIFEDINE [Concomitant]
     Indication: Hypertension
     Dosage: 30 MG, QD
     Route: 065
     Dates: start: 2022

REACTIONS (2)
  - Bronchitis chronic [Recovered/Resolved]
  - Dizziness [Recovered/Resolved]

NARRATIVE: CASE EVENT DATE: 20250728
